FAERS Safety Report 17228343 (Version 3)
Quarter: 2020Q3

REPORT INFORMATION
  Report Type: Other
  Country: US (occurrence: US)
  Receive Date: 20200103
  Receipt Date: 20200903
  Transmission Date: 20201102
  Serious: Yes (Hospitalization, Other)
  Sender: FDA-Public Use
  Company Number: US-ROCHE-2511658

PATIENT
  Age: 66 Year
  Sex: Female
  Weight: 68.55 kg

DRUGS (12)
  1. ALBUTEROL. [Concomitant]
     Active Substance: ALBUTEROL
     Indication: COUGH
     Route: 055
     Dates: start: 20191208, end: 20191215
  2. OMEPRAZOLE. [Concomitant]
     Active Substance: OMEPRAZOLE
     Indication: GASTROOESOPHAGEAL REFLUX DISEASE
     Route: 048
  3. OMEPRAZOLE. [Concomitant]
     Active Substance: OMEPRAZOLE
     Route: 048
  4. METFORMIN [Concomitant]
     Active Substance: METFORMIN HYDROCHLORIDE
     Dosage: AM AND PM, ONGOING : YES
     Route: 048
     Dates: start: 2018
  5. BENZONATATE. [Concomitant]
     Active Substance: BENZONATATE
     Indication: COUGH
     Route: 048
  6. XARELTO [Concomitant]
     Active Substance: RIVAROXABAN
     Route: 048
     Dates: start: 201912
  7. TYSABRI [Concomitant]
     Active Substance: NATALIZUMAB
  8. OCREVUS [Suspect]
     Active Substance: OCRELIZUMAB
     Indication: RELAPSING MULTIPLE SCLEROSIS
     Dosage: ONGOING YES
     Route: 042
     Dates: start: 20191119
  9. OCREVUS [Suspect]
     Active Substance: OCRELIZUMAB
     Indication: RELAPSING-REMITTING MULTIPLE SCLEROSIS
     Route: 042
     Dates: start: 201911
  10. LISINOPRIL. [Concomitant]
     Active Substance: LISINOPRIL
     Indication: BLOOD PRESSURE MEASUREMENT
  11. AVONEX [Concomitant]
     Active Substance: INTERFERON BETA-1A
  12. METFORMIN [Concomitant]
     Active Substance: METFORMIN HYDROCHLORIDE
     Indication: GLUCOSE TOLERANCE IMPAIRED

REACTIONS (16)
  - Dizziness [Recovered/Resolved]
  - Bronchitis [Recovered/Resolved]
  - Pain in extremity [Unknown]
  - Immunosuppression [Not Recovered/Not Resolved]
  - Thrombosis [Unknown]
  - Pyrexia [Recovered/Resolved]
  - Blood lactic acid increased [Recovered/Resolved]
  - Cough [Recovered/Resolved]
  - Wheezing [Recovered/Resolved]
  - Procedural nausea [Recovered/Resolved]
  - Cognitive disorder [Not Recovered/Not Resolved]
  - Influenza [Recovered/Resolved]
  - Leukocytosis [Recovered/Resolved]
  - Glycosylated haemoglobin decreased [Unknown]
  - Lower respiratory tract congestion [Recovered/Resolved]
  - Rales [Recovered/Resolved]

NARRATIVE: CASE EVENT DATE: 201911
